FAERS Safety Report 4818967-6 (Version None)
Quarter: 2005Q4

REPORT INFORMATION
  Report Type: 
  Country: None (occurrence: None)
  Receive Date: 20051101
  Receipt Date: 20051017
  Transmission Date: 20060501
  Serious: Yes (Other)
  Sender: FDA-Public Use
  Company Number: 2005BH002419

PATIENT
  Age: 56 Year
  Sex: Male

DRUGS (3)
  1. DOBUTAMINE HCL [Suspect]
     Indication: CARDIOGENIC SHOCK
     Dosage: 5 UG/KG/MIN;
  2. DOPAMINE HCL [Suspect]
     Indication: CARDIOGENIC SHOCK
     Dosage: 5 UG/KG/MIN;
  3. LEVOSIMENDAN [Concomitant]

REACTIONS (2)
  - HAEMODYNAMIC INSTABILITY [None]
  - TACHYCARDIA [None]
